FAERS Safety Report 19860995 (Version 1)
Quarter: 2021Q3

REPORT INFORMATION
  Report Type: Spontaneous
  Country: FR (occurrence: FR)
  Receive Date: 20210920
  Receipt Date: 20210920
  Transmission Date: 20211014
  Serious: Yes (Other)
  Sender: FDA-Public Use
  Company Number: FR-MYLANLABS-2021M1063180

PATIENT
  Age: 49 Year
  Sex: Male
  Weight: 78 kg

DRUGS (4)
  1. METHOTREXATE. [Suspect]
     Active Substance: METHOTREXATE
     Dosage: 10 MILLIGRAM, QW (10 MG, WE)
     Dates: start: 201611
  2. METHOTREXATE. [Suspect]
     Active Substance: METHOTREXATE
     Indication: NEURODERMATITIS
     Dosage: 20 MILLIGRAM, QW (20 MG, WE)
     Dates: start: 201611
  3. METHOTREXATE. [Suspect]
     Active Substance: METHOTREXATE
     Dosage: 20 MILLIGRAM, QW (20 MG, WE)
     Dates: start: 201611
  4. ALITRETINOIN [Suspect]
     Active Substance: ALITRETINOIN
     Indication: NEURODERMATITIS
     Dosage: 30 MILLIGRAM, QD (30 MG, 1D)
     Dates: start: 201712

REACTIONS (2)
  - Hypercholesterolaemia [Unknown]
  - Erysipelas [Unknown]
